FAERS Safety Report 4356550-X (Version None)
Quarter: 2004Q2

REPORT INFORMATION
  Report Type: 
  Country: None (occurrence: None)
  Receive Date: 20040506
  Receipt Date: 20040426
  Transmission Date: 20050107
  Serious: No
  Sender: FDA-Public Use
  Company Number: 04P-167-0258939-00

PATIENT
  Age: 30 Year
  Sex: Female
  Weight: 92.5 kg

DRUGS (1)
  1. MERIDIA [Suspect]
     Indication: OBESITY
     Dosage: 10 MG, 1 IN 1 D, PER ORAL
     Route: 048
     Dates: start: 20040203, end: 20040402

REACTIONS (3)
  - DIZZINESS [None]
  - HYPERTENSION [None]
  - SPEECH DISORDER [None]
